FAERS Safety Report 7429664-5 (Version None)
Quarter: 2011Q2

REPORT INFORMATION
  Report Type: 
  Country: None (occurrence: None)
  Receive Date: 20110421
  Receipt Date: 20110413
  Transmission Date: 20111010
  Serious: Yes (Hospitalization)
  Sender: FDA-Public Use
  Company Number: KR-ABBOTT-10P-090-0656061-00

PATIENT
  Age: 37 Year
  Sex: Male

DRUGS (17)
  1. PRODIAX-23 [Concomitant]
     Indication: PNEUMONIA
  2. MYUNGIN BENZTROPINE MESYLATE [Concomitant]
     Indication: BIPOLAR DISORDER
     Route: 048
     Dates: start: 20100310
  3. KLARICID [Concomitant]
     Indication: OPPORTUNISTIC INFECTION PROPHYLAXIS
     Route: 048
     Dates: start: 20100329, end: 20100428
  4. ATIVAN [Concomitant]
     Indication: BIPOLAR DISORDER
     Dosage: 4MG/ML, 2 MG DAILY
     Route: 042
     Dates: start: 20100306, end: 20100310
  5. KALETRA [Suspect]
     Indication: PRODUCT USED FOR UNKNOWN INDICATION
     Dates: start: 20100222
  6. BROPHYLLINE CAPSULE 100 MG [Concomitant]
     Indication: RHINORRHOEA
     Route: 048
     Dates: start: 20100222, end: 20100227
  7. LEVOTUSS [Concomitant]
     Indication: ANTITUSSIVE THERAPY
     Dosage: 6MG/ML, 30 ML DAILY
     Route: 048
     Dates: start: 20100222, end: 20100227
  8. MYUNGIN LITIUM CARBONATE [Concomitant]
     Indication: BIPOLAR DISORDER
     Dosage: 1050 MG DAILY
     Route: 048
     Dates: start: 20081024
  9. PERIDOL [Concomitant]
     Indication: BIPOLAR DISORDER
     Dosage: 5MG/ML, 7.5 MG DAILY
     Route: 042
     Dates: start: 20100306, end: 20100310
  10. PRODIAX-23 [Concomitant]
     Indication: IMMUNISATION
     Dosage: 25MCG/ML, 0.5 ML
     Route: 030
     Dates: start: 20100712, end: 20100712
  11. RIVOTRIL [Concomitant]
     Indication: BIPOLAR DISORDER
     Route: 048
     Dates: start: 20081024
  12. MEIACT [Concomitant]
     Indication: PNEUMONIA
     Route: 048
     Dates: start: 20100221, end: 20100227
  13. BROPHYLLINE CAPSULE 100 MG [Concomitant]
     Indication: PRODUCTIVE COUGH
  14. SEROQUEL [Concomitant]
     Indication: BIPOLAR DISORDER
     Route: 048
     Dates: start: 20081024
  15. 3TC/AZT [Concomitant]
     Indication: ANTIRETROVIRAL THERAPY
     Dosage: 900 MG DAILY
     Dates: start: 20100222
  16. SULFAMETHOXAZOLE AND TRIMETHOPRIM [Concomitant]
     Indication: ANTIFUNGAL PROPHYLAXIS
     Dosage: 2 TABLETS DAILY
     Route: 048
     Dates: start: 20100214, end: 20100711
  17. SULFAMETHOXAZOLE AND TRIMETHOPRIM [Concomitant]
     Dosage: 1 TABLET DAILY
     Route: 048
     Dates: start: 20100712

REACTIONS (1)
  - BIPOLAR DISORDER [None]
